FAERS Safety Report 5198122-3 (Version None)
Quarter: 2007Q1

REPORT INFORMATION
  Report Type: 
  Country: None (occurrence: None)
  Receive Date: 20070104
  Receipt Date: 20061227
  Transmission Date: 20070707
  Serious: Yes (Disabling)
  Sender: FDA-Public Use
  Company Number: US-ROCHE-386394

PATIENT
  Age: 20 Year
  Sex: Male
  Weight: 88.5 kg

DRUGS (6)
  1. ACCUTANE [Suspect]
     Indication: ACNE
     Route: 048
     Dates: start: 20030210, end: 20030325
  2. ACCUTANE [Suspect]
     Route: 048
     Dates: start: 20030325, end: 20030422
  3. ACCUTANE [Suspect]
     Route: 048
     Dates: start: 20030422, end: 20030610
  4. ACCUTANE [Suspect]
     Route: 048
     Dates: end: 20040315
  5. ANTIBIOTIC [Concomitant]
     Indication: DRUG USE FOR UNKNOWN INDICATION
  6. CEPHALEXIN [Concomitant]
     Indication: ACNE
     Route: 048
     Dates: start: 20030210

REACTIONS (48)
  - ABDOMINAL PAIN [None]
  - ALANINE AMINOTRANSFERASE INCREASED [None]
  - ANXIETY [None]
  - BACK INJURY [None]
  - BACK PAIN [None]
  - BLINDNESS [None]
  - BLOOD CHOLESTEROL INCREASED [None]
  - BLOOD CREATININE INCREASED [None]
  - CARPAL TUNNEL SYNDROME [None]
  - CHEST DISCOMFORT [None]
  - CHEST PAIN [None]
  - DEPRESSION [None]
  - DIVERTICULITIS [None]
  - DYSPEPSIA [None]
  - ERECTILE DYSFUNCTION [None]
  - EYE INJURY [None]
  - FOLLICULITIS [None]
  - GASTROINTESTINAL DISORDER [None]
  - HAEMORRHAGE [None]
  - HAEMORRHOIDS [None]
  - HEADACHE [None]
  - HYPOAESTHESIA [None]
  - INFLAMMATORY BOWEL DISEASE [None]
  - INFLUENZA [None]
  - INJURY [None]
  - INSOMNIA [None]
  - INTESTINAL HAEMORRHAGE [None]
  - JOINT SPRAIN [None]
  - LACERATION [None]
  - LOW DENSITY LIPOPROTEIN INCREASED [None]
  - MUSCLE SPASMS [None]
  - NECK INJURY [None]
  - NEPHROLITHIASIS [None]
  - NERVE COMPRESSION [None]
  - NIGHT BLINDNESS [None]
  - NO THERAPEUTIC RESPONSE [None]
  - PAIN [None]
  - PAIN IN EXTREMITY [None]
  - PANIC DISORDER [None]
  - PHARYNGITIS STREPTOCOCCAL [None]
  - RASH [None]
  - RECTAL HAEMORRHAGE [None]
  - RED BLOOD CELL COUNT DECREASED [None]
  - SINUSITIS [None]
  - SKIN NODULE [None]
  - STRESS AT WORK [None]
  - VISION BLURRED [None]
  - VISUAL DISTURBANCE [None]
